FAERS Safety Report 25450013 (Version 1)
Quarter: 2025Q2

REPORT INFORMATION
  Report Type: Spontaneous
  Country: DE (occurrence: DE)
  Receive Date: 20250618
  Receipt Date: 20250618
  Transmission Date: 20250717
  Serious: Yes (Other)
  Sender: BRISTOL-MYERS SQUIBB COMPANY
  Company Number: DE-BRISTOL-MYERS SQUIBB COMPANY-2025-084894

PATIENT
  Sex: Female

DRUGS (4)
  1. IPILIMUMAB [Suspect]
     Active Substance: IPILIMUMAB
     Indication: Metastatic malignant melanoma
     Dates: start: 202307
  2. NIVOLUMAB [Suspect]
     Active Substance: NIVOLUMAB
     Indication: Metastatic malignant melanoma
     Dates: start: 202307
  3. NIVOLUMAB [Suspect]
     Active Substance: NIVOLUMAB
  4. NIVOLUMAB [Suspect]
     Active Substance: NIVOLUMAB

REACTIONS (9)
  - Pulmonary sarcoidosis [Unknown]
  - Cough variant asthma [Unknown]
  - Hypersensitivity [Unknown]
  - Sneezing [Unknown]
  - Pruritus [Unknown]
  - Eczema [Unknown]
  - Mucosal dryness [Recovering/Resolving]
  - Sinusitis [Recovering/Resolving]
  - Headache [Recovering/Resolving]
